FAERS Safety Report 8186126-8 (Version None)
Quarter: 2012Q1

REPORT INFORMATION
  Report Type: 
  Country: None (occurrence: None)
  Receive Date: 20120301
  Receipt Date: 20120216
  Transmission Date: 20120608
  Serious: Yes (Other)
  Sender: FDA-Public Use
  Company Number: TCI2012A00774

PATIENT
  Age: 84 Year
  Sex: Female

DRUGS (4)
  1. LANSOPRAZOLE [Suspect]
     Dosage: 30 MG (30 MG,1 D) PER ORAL ; 15 MG (15 MG,1 D) PER ORAL
     Route: 048
     Dates: end: 20110722
  2. LANSOPRAZOLE [Suspect]
     Dosage: 30 MG (30 MG,1 D) PER ORAL ; 15 MG (15 MG,1 D) PER ORAL
     Route: 048
     Dates: start: 20100607
  3. LIPITOR [Concomitant]
  4. DEPAS (ETIZOLAM) [Concomitant]

REACTIONS (4)
  - C-REACTIVE PROTEIN INCREASED [None]
  - COLITIS [None]
  - LARGE INTESTINE CARCINOMA [None]
  - DRUG HYPERSENSITIVITY [None]
